FAERS Safety Report 18155282 (Version 1)
Quarter: 2020Q3

REPORT INFORMATION
  Report Type: Spontaneous
  Country: US (occurrence: US)
  Receive Date: 20200815
  Receipt Date: 20200815
  Transmission Date: 20201103
  Serious: Yes (Other)
  Sender: FDA-Public Use
  Company Number: None

PATIENT
  Age: 69 Year
  Sex: Male
  Weight: 108.45 kg

DRUGS (22)
  1. MUPIROCIN 2 % OINTMENT (CENTANY) [Concomitant]
     Dates: start: 20200813
  2. ENOXAPARIN INJ SYG 40 MG (LOVENOX) [Concomitant]
     Dates: start: 20200811, end: 20200813
  3. VANCOMYCIN ADD VIAL 1.5 G (VANCOCIN) [Concomitant]
     Dates: start: 20200812, end: 20200814
  4. AZITHROMYCIN ADD VIAL 500 MG [Concomitant]
     Dates: start: 20200811
  5. CEFTRIAXONE INJ 2 G (ROCEPHIN) [Concomitant]
     Dates: start: 20200811, end: 20200811
  6. FUROSEMIDE INJ 40 MG (LASIX) [Concomitant]
     Dates: start: 20200814, end: 20200814
  7. CEFEPIME ADD VIAL 1 G (MAXIPIME) [Concomitant]
     Dates: start: 20200814
  8. DEXAMETHASONE SODIUM PHOSPHATE INJ 6 MG (DECADRON) [Concomitant]
     Dates: start: 20200814
  9. FENTANYL (PF) IN NS 10 MCG/ML IV SOLN [Concomitant]
     Dates: start: 20200813
  10. PROPOFOL 1000 MG/100 ML IV SOLN (DIPRIVAN) [Concomitant]
     Dates: start: 20200813
  11. REMDESIVIR (EUA) 100 MG RECON SOLN [Suspect]
     Active Substance: REMDESIVIR
     Indication: COVID-19
     Route: 042
     Dates: start: 20200813, end: 20200815
  12. BENZONATATE CAP 100 MG (TESSALON PERLES) [Concomitant]
     Dates: start: 20200813, end: 20200813
  13. NOREPINEPHRINE 16 MG IN SODIUM CHLORIDE 0.9% 250 ML IV SOLN [Concomitant]
     Dates: start: 20200813
  14. ALBUTEROL 90 MCG/ACTUATION HFA MDI 4 PUFF (PROAIR/PROVENTIL/VENTOLIN) [Concomitant]
     Dates: start: 20200813
  15. CHLORHEXIDINE GLUCONATE ORAL SOLN 5 ML (PERIDEX/PERIOGARD) [Concomitant]
     Dates: start: 20200811
  16. NEPHRO?VITE / FULL SPECTRUM 0.8 MG 1 TABLET (VITAMIN B COMPLEX?VIT C?F [Concomitant]
     Dates: start: 20200814
  17. ROCURONIUM INJ 50 MG [Concomitant]
     Dates: start: 20200813, end: 20200813
  18. ALBUMIN HUMAN 25 % IV PREMIX 12.5 G [Concomitant]
     Dates: start: 20200815
  19. HEPARIN (PORCINE) IN 0.45% NACL 25,000 UNIT/250 ML IV PREMIX [Concomitant]
     Dates: start: 20200813
  20. CEFTAZIDIME ADD VIAL 2 G (FORTAZ/TAZICEF) [Concomitant]
     Dates: start: 20200814, end: 20200814
  21. FAMOTIDINE (PF) INJ 20 MG (PEPCID [Concomitant]
     Dates: start: 20200815
  22. PNEUMOCOCCAL 23?VAL PS VACCINE INJ 0.5 ML (PNEUMOVAX?23) [Concomitant]
     Dates: start: 20200812, end: 20200812

REACTIONS (3)
  - Therapy cessation [None]
  - Blood creatinine increased [None]
  - Dialysis [None]

NARRATIVE: CASE EVENT DATE: 20200815
